FAERS Safety Report 15518556 (Version 5)
Quarter: 2020Q1

REPORT INFORMATION
  Report Type: Report from Study
  Country: US (occurrence: US)
  Receive Date: 20181017
  Receipt Date: 20200213
  Transmission Date: 20200409
  Serious: Yes (Hospitalization)
  Sender: FDA-Public Use
  Company Number: US-ACTELION-A-US2016-146761

PATIENT
  Age: 41 Year
  Sex: Female
  Weight: 79.37 kg

DRUGS (16)
  1. OPSUMIT [Suspect]
     Active Substance: MACITENTAN
     Dosage: 10 MG, QD
     Route: 048
     Dates: start: 20170104
  2. SILDENAFIL. [Concomitant]
     Active Substance: SILDENAFIL
  3. BENZACLIN [Concomitant]
     Active Substance: BENZOYL PEROXIDE\CLINDAMYCIN PHOSPHATE
  4. TYLENOL [Concomitant]
     Active Substance: ACETAMINOPHEN
  5. SERTRALINE [Concomitant]
     Active Substance: SERTRALINE HYDROCHLORIDE
  6. OMEPRAZOLE. [Concomitant]
     Active Substance: OMEPRAZOLE
  7. VELETRI [Suspect]
     Active Substance: EPOPROSTENOL
     Indication: PULMONARY ARTERIAL HYPERTENSION
     Dosage: 22 NG/KG, PER MIN
     Route: 042
     Dates: start: 20170801
  8. VELETRI [Suspect]
     Active Substance: EPOPROSTENOL
     Dosage: 19 NG/KG, PER MIN
     Route: 042
     Dates: start: 20141008
  9. ALBUTEROL. [Concomitant]
     Active Substance: ALBUTEROL
  10. VELETRI [Suspect]
     Active Substance: EPOPROSTENOL
     Dosage: 30 NG/KG, PER MIN
     Route: 042
     Dates: start: 20180919
  11. VELETRI [Suspect]
     Active Substance: EPOPROSTENOL
     Dosage: 32 NG/KG, PER MIN
     Route: 042
     Dates: start: 20170802
  12. VELETRI [Suspect]
     Active Substance: EPOPROSTENOL
     Dosage: 22.4 NG/KG, PER MIN
     Route: 042
  13. OPSUMIT [Suspect]
     Active Substance: MACITENTAN
     Indication: PULMONARY ARTERIAL HYPERTENSION
     Dosage: 10 MG, QD
     Route: 048
     Dates: start: 20160802
  14. VELETRI [Suspect]
     Active Substance: EPOPROSTENOL
     Dosage: 31 NG/KG, PER MIN
     Route: 042
     Dates: start: 20190725
  15. ADEMPAS [Suspect]
     Active Substance: RIOCIGUAT
     Indication: PRODUCT USED FOR UNKNOWN INDICATION
     Route: 065
  16. FUROSEMIDE. [Concomitant]
     Active Substance: FUROSEMIDE

REACTIONS (25)
  - Stress [Unknown]
  - Hospitalisation [Unknown]
  - Dyspnoea exertional [Not Recovered/Not Resolved]
  - Hair growth abnormal [Unknown]
  - Dyspnoea [Unknown]
  - Headache [Unknown]
  - Back pain [Unknown]
  - Pulmonary arterial hypertension [Not Recovered/Not Resolved]
  - Haematemesis [Unknown]
  - Nausea [Unknown]
  - Device occlusion [Unknown]
  - Flushing [Unknown]
  - Fatigue [Unknown]
  - Ear infection [Unknown]
  - Throat irritation [Unknown]
  - Diarrhoea [Unknown]
  - Condition aggravated [Not Recovered/Not Resolved]
  - Device issue [Not Recovered/Not Resolved]
  - Hypercapnia [Unknown]
  - Dizziness [Unknown]
  - Chest discomfort [Unknown]
  - Vomiting [Unknown]
  - Chest pain [Unknown]
  - Fluid retention [Unknown]
  - Abdominal pain upper [Unknown]

NARRATIVE: CASE EVENT DATE: 20180825
